FAERS Safety Report 9878247 (Version 2)
Quarter: 2014Q1

REPORT INFORMATION
  Report Type: Spontaneous
  Country: US (occurrence: US)
  Receive Date: 20140206
  Receipt Date: 20140206
  Transmission Date: 20141002
  Serious: Yes (Death)
  Sender: FDA-Public Use
  Company Number: US-GE HEALTHCARE MEDICAL DIAGNOSTICS-OSCN-PR-0803S-0175

PATIENT
  Age: 75 Year
  Sex: Male

DRUGS (2)
  1. OMNISCAN [Suspect]
     Indication: PRODUCT USED FOR UNKNOWN INDICATION
     Route: 042
     Dates: start: 20060608, end: 20060608
  2. OMNISCAN [Suspect]
     Route: 042
     Dates: start: 20060609, end: 20060609

REACTIONS (1)
  - Nephropathy toxic [Fatal]
